FAERS Safety Report 8624588-X (Version None)
Quarter: 2012Q3

REPORT INFORMATION
  Report Type: 
  Country: None (occurrence: None)
  Receive Date: 20120827
  Receipt Date: 20120816
  Transmission Date: 20120928
  Serious: Yes (Other)
  Sender: FDA-Public Use
  Company Number: US-ASTRAZENECA-2010SE32603

PATIENT
  Age: 64 Year
  Sex: Female

DRUGS (5)
  1. 14 DIFFERENT UNSPECIFIED MEDICATIONS [Concomitant]
  2. NEXIUM [Suspect]
     Route: 048
  3. PREVACID [Concomitant]
  4. GABAPENTIN [Concomitant]
  5. HYDROCODONE [Concomitant]

REACTIONS (16)
  - ACCIDENT [None]
  - GASTRIC DISORDER [None]
  - MYOCARDIAL INFARCTION [None]
  - BACK INJURY [None]
  - FIBULA FRACTURE [None]
  - DRUG DOSE OMISSION [None]
  - FALL [None]
  - PAIN [None]
  - FUNCTIONAL GASTROINTESTINAL DISORDER [None]
  - CHRONIC OBSTRUCTIVE PULMONARY DISEASE [None]
  - NECK INJURY [None]
  - ABDOMINAL PAIN UPPER [None]
  - CARDIAC DISORDER [None]
  - FOOT FRACTURE [None]
  - TIBIA FRACTURE [None]
  - DIARRHOEA [None]
